FAERS Safety Report 5780524-5 (Version None)
Quarter: 2008Q2

REPORT INFORMATION
  Report Type: 
  Country: None (occurrence: None)
  Receive Date: 20080620
  Receipt Date: 20080619
  Transmission Date: 20081010
  Serious: Yes (Life-Threatening, Hospitalization)
  Sender: FDA-Public Use
  Company Number: US-ASTRAZENECA-2008UW12400

PATIENT
  Age: 45 Year
  Sex: Male

DRUGS (3)
  1. CRESTOR [Suspect]
     Route: 048
     Dates: start: 20020101, end: 20060101
  2. CRESTOR [Suspect]
     Route: 048
     Dates: start: 20060101
  3. LISINOPRIL [Concomitant]

REACTIONS (2)
  - HEPATIC CANCER STAGE IV [None]
  - LUNG CARCINOMA CELL TYPE UNSPECIFIED STAGE IV [None]
